FAERS Safety Report 6945246-3 (Version None)
Quarter: 2010Q3

REPORT INFORMATION
  Report Type: 
  Country: None (occurrence: None)
  Receive Date: 20100827
  Receipt Date: 20100728
  Transmission Date: 20110219
  Serious: No
  Sender: FDA-Public Use
  Company Number: US-KINGPHARMUSA00001-K201000971

PATIENT
  Sex: Female

DRUGS (2)
  1. FLECTOR [Suspect]
     Indication: ARTHRALGIA
     Dosage: 1 PATCH, SINGLE, FOR 12 HOURS
     Route: 061
  2. FLECTOR [Suspect]
     Indication: RHEUMATOID ARTHRITIS

REACTIONS (1)
  - BONE PAIN [None]
